FAERS Safety Report 9210941 (Version 4)
Quarter: 2014Q2

REPORT INFORMATION
  Report Type: Spontaneous
  Country: US (occurrence: US)
  Receive Date: 20130404
  Receipt Date: 20140509
  Transmission Date: 20141212
  Serious: Yes (Hospitalization, Other)
  Sender: FDA-Public Use
  Company Number: US-PFIZER INC-2013107013

PATIENT
  Age: 78 Year
  Sex: Female
  Weight: 57.6 kg

DRUGS (6)
  1. ZOLOFT [Suspect]
     Indication: DEPRESSION
     Dosage: 50 MG, DAILY
  2. ZOLOFT [Suspect]
     Dosage: UNK
  3. LIPITOR [Suspect]
     Indication: BLOOD CHOLESTEROL INCREASED
     Dosage: 40 MG, DAILY
  4. LIPITOR [Suspect]
     Dosage: UNK
  5. NEURONTIN [Suspect]
     Indication: SPINAL COLUMN STENOSIS
     Dosage: 600 MG, 3X/DAY
     Dates: start: 2009
  6. NIACIN [Suspect]
     Dosage: UNK

REACTIONS (7)
  - Depression [Unknown]
  - Hypertension [Unknown]
  - Apparent life threatening event [Unknown]
  - Blindness [Unknown]
  - Blood cholesterol decreased [Unknown]
  - Tinnitus [Unknown]
  - Feeling abnormal [Unknown]
